FAERS Safety Report 23178684 (Version 2)
Quarter: 2023Q4

REPORT INFORMATION
  Report Type: Report from Study
  Country: TR (occurrence: TR)
  Receive Date: 20231113
  Receipt Date: 20231116
  Transmission Date: 20240110
  Serious: Yes (Death)
  Sender: FDA-Public Use
  Company Number: TR-Merck Healthcare KGaA-2023484963

PATIENT
  Age: 59 Year
  Sex: Male
  Weight: 55 kg

DRUGS (5)
  1. BAVENCIO [Suspect]
     Active Substance: AVELUMAB
     Indication: Transitional cell carcinoma
     Route: 042
     Dates: start: 20230922
  2. GLYBURIDE\METFORMIN HYDROCHLORIDE [Concomitant]
     Active Substance: GLYBURIDE\METFORMIN HYDROCHLORIDE
     Indication: Type 2 diabetes mellitus
     Route: 048
     Dates: start: 20230301
  3. ARCAPTA NEOHALER [Concomitant]
     Active Substance: INDACATEROL MALEATE
     Indication: Chronic obstructive pulmonary disease
     Route: 055
     Dates: start: 20191001
  4. SPIRIVA [Concomitant]
     Active Substance: TIOTROPIUM BROMIDE MONOHYDRATE
     Indication: Chronic obstructive pulmonary disease
     Route: 055
     Dates: start: 20110503
  5. TRAMADOL HYDROCHLORIDE [Concomitant]
     Active Substance: TRAMADOL HYDROCHLORIDE
     Indication: Cancer pain
     Route: 048
     Dates: start: 20230404

REACTIONS (1)
  - Cystitis [Fatal]

NARRATIVE: CASE EVENT DATE: 20231017
